FAERS Safety Report 23494667 (Version 1)
Quarter: 2024Q1

REPORT INFORMATION
  Report Type: Spontaneous
  Country: GB (occurrence: GB)
  Receive Date: 20240207
  Receipt Date: 20240207
  Transmission Date: 20240409
  Serious: Yes (Other)
  Sender: FDA-Public Use
  Company Number: GB-MHRA-MED-202401262356474950-CBNJY

PATIENT
  Age: 38 Year
  Sex: Female

DRUGS (2)
  1. BUPROPION HYDROCHLORIDE\NALTREXONE HYDROCHLORIDE [Suspect]
     Active Substance: BUPROPION HYDROCHLORIDE\NALTREXONE HYDROCHLORIDE
     Indication: Weight decreased
     Dosage: STRENGTH: 8MG/ 90MG ONCE IN THE MORNING
     Route: 065
     Dates: start: 20240125, end: 20240126
  2. SERTRALINE [Concomitant]
     Active Substance: SERTRALINE HYDROCHLORIDE
     Indication: Depression
     Dosage: 50 MG OD
     Route: 065
     Dates: start: 20240125

REACTIONS (3)
  - Serotonin syndrome [Recovering/Resolving]
  - Hypotension [Unknown]
  - Medication error [Unknown]

NARRATIVE: CASE EVENT DATE: 20240101
